FAERS Safety Report 7970223-3 (Version None)
Quarter: 2011Q4

REPORT INFORMATION
  Report Type: 
  Country: None (occurrence: None)
  Receive Date: 20111122
  Receipt Date: 20110705
  Transmission Date: 20120403
  Serious: No
  Sender: FDA-Public Use
  Company Number: PHHY2011US42730

PATIENT
  Age: 65 Year
  Sex: Female

DRUGS (3)
  1. LIPID MODIFYING AGENTS (NO INGREDIENTS/SUBSTANCES) [Concomitant]
  2. ANTIHYPERTENSIVE DRUGS (NO INGREDIENTS/SUBSTANCES) [Concomitant]
  3. GILENYA [Suspect]
     Indication: MULTIPLE SCLEROSIS
     Dosage: 0.5 MG, QD, ORAL
     Route: 048
     Dates: start: 20110506

REACTIONS (8)
  - OEDEMA PERIPHERAL [None]
  - HAIR TEXTURE ABNORMAL [None]
  - BLOOD PRESSURE DECREASED [None]
  - DRY MOUTH [None]
  - HEART RATE DECREASED [None]
  - NASAL DRYNESS [None]
  - DRY EYE [None]
  - PAIN IN EXTREMITY [None]
